FAERS Safety Report 9462714 (Version 1)
Quarter: 2013Q3

REPORT INFORMATION
  Report Type: Spontaneous
  Country: US (occurrence: US)
  Receive Date: 20130816
  Receipt Date: 20130816
  Transmission Date: 20140515
  Serious: No
  Sender: FDA-Public Use
  Company Number: US-PFIZER INC-2013237377

PATIENT
  Age: 28 Year
  Sex: Female
  Weight: 65.76 kg

DRUGS (8)
  1. LYRICA [Suspect]
     Indication: FIBROMYALGIA
     Dosage: UNK, 1X/DAY
     Dates: start: 2009, end: 2012
  2. LYRICA [Suspect]
     Dosage: 225 MG, 1X/DAY
     Dates: start: 2012
  3. NEXIUM [Concomitant]
     Indication: GASTROOESOPHAGEAL REFLUX DISEASE
     Dosage: UNK
  4. NALTREXONE [Concomitant]
     Dosage: UNK
  5. VICODIN [Concomitant]
     Dosage: UNK
  6. LEXAPRO [Concomitant]
     Indication: DEPRESSION
     Dosage: UNK
  7. SPRINTEC [Concomitant]
     Indication: CONTRACEPTION
     Dosage: UNK
  8. XYREM [Concomitant]
     Indication: HYPERSOMNIA
     Dosage: UNK

REACTIONS (1)
  - Malaise [Unknown]
